FAERS Safety Report 4512575-2 (Version None)
Quarter: 2004Q4

REPORT INFORMATION
  Report Type: 
  Country: None (occurrence: None)
  Receive Date: 20041124
  Receipt Date: 20041112
  Transmission Date: 20050328
  Serious: Yes (Other)
  Sender: FDA-Public Use
  Company Number: A03200402718

PATIENT
  Age: 85 Year
  Sex: Female

DRUGS (1)
  1. ELOXATIN [Suspect]
     Indication: COLON CANCER
     Dosage: INTRAVENOUS NOS
     Route: 042

REACTIONS (5)
  - DEHYDRATION [None]
  - DIALYSIS [None]
  - DIARRHOEA [None]
  - DISEASE PROGRESSION [None]
  - RENAL FAILURE [None]
